FAERS Safety Report 8847858 (Version 1)
Quarter: 2012Q4

REPORT INFORMATION
  Report Type: 
  Country: CA (occurrence: CA)
  Receive Date: 20121018
  Receipt Date: 20121018
  Transmission Date: 20130627
  Serious: Yes (Death)
  Sender: FDA-Public Use
  Company Number: PHHY2012CA092845

PATIENT
  Age: 70 Year
  Sex: Female

DRUGS (1)
  1. LORAZEPAM [Suspect]
     Indication: PALLIATIVE CARE
     Dates: start: 20120821

REACTIONS (2)
  - Death [Fatal]
  - Incorrect storage of drug [Unknown]
